FAERS Safety Report 15956664 (Version 2)
Quarter: 2019Q1

REPORT INFORMATION
  Report Type: Spontaneous
  Country: US (occurrence: US)
  Receive Date: 20190213
  Receipt Date: 20190329
  Transmission Date: 20190417
  Serious: No
  Sender: FDA-Public Use
  Company Number: US-BAYER-2019-029040

PATIENT
  Age: 18 Year
  Sex: Female

DRUGS (4)
  1. MIRENA [Suspect]
     Active Substance: LEVONORGESTREL
     Indication: HORMONE LEVEL ABNORMAL
  2. MIRENA [Suspect]
     Active Substance: LEVONORGESTREL
     Indication: HORMONE LEVEL ABNORMAL
     Dosage: 20 MCG/24HR, CONT
     Route: 015
     Dates: start: 20140603
  3. MIRENA [Suspect]
     Active Substance: LEVONORGESTREL
     Indication: MENSTRUAL CYCLE MANAGEMENT
  4. MIRENA [Suspect]
     Active Substance: LEVONORGESTREL
     Indication: MENSTRUAL CYCLE MANAGEMENT

REACTIONS (8)
  - Amenorrhoea [Recovered/Resolved]
  - Premenstrual syndrome [None]
  - Off label use of device [None]
  - Device use issue [None]
  - Drug ineffective for unapproved indication [Not Recovered/Not Resolved]
  - Product quality issue [None]
  - Hypomenorrhoea [None]
  - Menorrhagia [Not Recovered/Not Resolved]

NARRATIVE: CASE EVENT DATE: 201406
